FAERS Safety Report 9222190 (Version 1)
Quarter: 2013Q2

REPORT INFORMATION
  Report Type: Spontaneous
  Country: US (occurrence: None)
  Receive Date: 20130408
  Receipt Date: 20130408
  Transmission Date: 20140414
  Serious: Yes (Death)
  Sender: FDA-Public Use
  Company Number: SYM-2013-02306

PATIENT
  Age: 46 Year
  Sex: Female

DRUGS (7)
  1. XENAZINE (TETRABENAZINE) (TABLETS) (TETRABENAZINE) [Suspect]
     Indication: PRODUCT USED FOR UNKNOWN INDICATION
     Route: 048
  2. SINEMET (SINEMET) (TABLETS) (LEVODOPA, CARBIDOPA) [Concomitant]
  3. FLEXERIL (CEFIXIME) (TABLETS) (CEFIXIME) [Concomitant]
  4. XANAX (ALPRAZOLAM) (TABLETS) (ALPRAZOLAM) [Concomitant]
  5. ZOLOFT (SERTRALINE HYDROCHLORIDE) (TABLETS) (SERTRALINE HYDROCHLORIDE) [Concomitant]
  6. PRIMROSE OIL (OTHER THERAPEUTIC PRODUCTS) (CAPSULE) (NULL) [Concomitant]
  7. ADVANCED WOMENS (OTHER THERAPEUTIC PRODUCTS) (TABLETS) (NULL) [Concomitant]

REACTIONS (1)
  - Death [None]
